FAERS Safety Report 4422378-5 (Version None)
Quarter: 2004Q3

REPORT INFORMATION
  Report Type: 
  Country: None (occurrence: None)
  Receive Date: 20040810
  Receipt Date: 20040729
  Transmission Date: 20050211
  Serious: Yes (Hospitalization)
  Sender: FDA-Public Use
  Company Number: US-JNJFOC-20040608373

PATIENT
  Sex: Female

DRUGS (30)
  1. INFLIXIMAB [Suspect]
     Dosage: 100 MG
     Route: 042
  2. INFLIXIMAB [Suspect]
     Indication: RHEUMATOID ARTHRITIS
     Dosage: 100 MG
     Route: 042
  3. FOLIC ACID [Concomitant]
     Route: 049
     Dates: start: 19981228
  4. ACTONEL [Concomitant]
     Route: 049
     Dates: start: 20021101
  5. ULTRACET [Concomitant]
     Dosage: 37.5-325 MG
     Route: 049
     Dates: start: 20021101
  6. BEXTRA [Concomitant]
     Route: 049
     Dates: start: 20021101
  7. NEURONTIN [Concomitant]
     Route: 049
     Dates: start: 20020801
  8. CALCIUM CARBONATE/VITAMIN D [Concomitant]
     Dosage: 500-200 MG-IU
     Route: 049
     Dates: start: 19981228
  9. PLAQUENIL [Concomitant]
     Route: 049
     Dates: start: 19981228
  10. ATENOLOL [Concomitant]
     Route: 049
     Dates: start: 19931201
  11. ASPIRIN [Concomitant]
     Route: 049
     Dates: start: 19931201
  12. VITAMIN E [Concomitant]
     Route: 049
     Dates: start: 19931201
  13. MULTI-VITAMINS [Concomitant]
     Route: 049
     Dates: start: 19931201
  14. MULTI-VITAMINS [Concomitant]
     Route: 049
     Dates: start: 19931201
  15. MULTI-VITAMINS [Concomitant]
     Route: 049
     Dates: start: 19931201
  16. MULTI-VITAMINS [Concomitant]
     Route: 049
     Dates: start: 19931201
  17. MULTI-VITAMINS [Concomitant]
     Route: 049
     Dates: start: 19931201
  18. MULTI-VITAMINS [Concomitant]
     Route: 049
     Dates: start: 19931201
  19. MULTI-VITAMINS [Concomitant]
     Route: 049
     Dates: start: 19931201
  20. MULTI-VITAMINS [Concomitant]
     Route: 049
     Dates: start: 19931201
  21. METHOTREXATE SODIUM [Concomitant]
     Route: 049
     Dates: start: 19981228
  22. ALDOMET [Concomitant]
  23. FORTEO [Concomitant]
     Indication: OSTEOPOROSIS
     Route: 058
  24. PROTONIX [Concomitant]
     Route: 049
  25. ULTRAM [Concomitant]
     Dosage: 50 MG Q 6 HRS PRN
     Route: 049
  26. TYLENOL [Concomitant]
     Dosage: 650 MG Q 6 HOURS PRN
     Route: 049
  27. MILK OF MAGNESIA TAB [Concomitant]
     Dosage: 10 CC BID PRN
     Route: 049
  28. DESYREL [Concomitant]
     Dosage: 25 MG Q HS
  29. COMBIVENT [Concomitant]
  30. COMBIVENT [Concomitant]
     Dosage: 103-18 MCG ACT AEROSOL

REACTIONS (14)
  - BLOOD GLUCOSE INCREASED [None]
  - BLOOD POTASSIUM DECREASED [None]
  - BLOOD SODIUM DECREASED [None]
  - BOWEL SOUNDS ABNORMAL [None]
  - DEHYDRATION [None]
  - ELECTROCARDIOGRAM QT PROLONGED [None]
  - HAEMATOCRIT DECREASED [None]
  - LOSS OF CONSCIOUSNESS [None]
  - NAUSEA [None]
  - OESOPHAGEAL CANDIDIASIS [None]
  - OSTEOPOROSIS [None]
  - PANCREATITIS [None]
  - VENTRICULAR EXTRASYSTOLES [None]
  - VOMITING [None]
